FAERS Safety Report 8864976 (Version 1)
Quarter: 2012Q4

REPORT INFORMATION
  Report Type: 
  Country: US (occurrence: US)
  Receive Date: 20121024
  Receipt Date: 20121024
  Transmission Date: 20130627
  Serious: No
  Sender: FDA-Public Use
  Company Number: US-AMGEN-USASP2012000188

PATIENT
  Age: 60 Year
  Sex: Female
  Weight: 90.7 kg

DRUGS (7)
  1. ENBREL [Suspect]
     Indication: PRODUCT USED FOR UNKNOWN INDICATION
     Dosage: 50 mg, qwk
     Route: 058
  2. SYNTHROID [Concomitant]
     Dosage: 25 UNK, UNK
  3. CENTRUM SILVER                     /01292501/ [Concomitant]
  4. FISH OIL [Concomitant]
  5. BUPROPION [Concomitant]
  6. FOLIC ACID [Concomitant]
     Dosage: 5 mg, UNK
  7. METHOTREXATE [Concomitant]
     Dosage: 2.5 mg, UNK

REACTIONS (1)
  - Injection site reaction [Unknown]
